FAERS Safety Report 4864514-2 (Version None)
Quarter: 2005Q4

REPORT INFORMATION
  Report Type: 
  Country: None (occurrence: None)
  Receive Date: 20051222
  Receipt Date: 20051213
  Transmission Date: 20060501
  Serious: Yes (Other)
  Sender: FDA-Public Use
  Company Number: AU-ROCHE-428592

PATIENT
  Age: 55 Year
  Sex: Male

DRUGS (16)
  1. CEFTRIAXONE [Suspect]
     Route: 042
     Dates: start: 20031130, end: 20031204
  2. FLOXACILLIN SODIUM [Suspect]
     Route: 042
     Dates: start: 20031203, end: 20031205
  3. GENTAMICIN SULFATE [Suspect]
     Indication: DRUG USE FOR UNKNOWN INDICATION
     Route: 042
     Dates: start: 20031203, end: 20031204
  4. VOLTAREN [Suspect]
     Indication: DRUG USE FOR UNKNOWN INDICATION
     Route: 048
     Dates: start: 20031203, end: 20031203
  5. INDOCID [Suspect]
     Indication: DRUG USE FOR UNKNOWN INDICATION
     Route: 065
     Dates: start: 20031203, end: 20031203
  6. ASPIRIN [Suspect]
     Route: 048
     Dates: start: 20031127, end: 20031205
  7. FRUSEMIDE [Suspect]
     Indication: DRUG USE FOR UNKNOWN INDICATION
     Route: 048
     Dates: start: 20031130, end: 20031205
  8. ZOCOR [Concomitant]
  9. OMEPRAZOLE [Concomitant]
  10. HEPARIN [Concomitant]
  11. COLOXYL WITH SENNA [Concomitant]
  12. TEMAZEPAM [Concomitant]
  13. METOCLOPRAMIDE [Concomitant]
  14. METOPROLOL [Concomitant]
  15. ONDANSETRON [Concomitant]
  16. PROCHLORPERAZINE [Concomitant]

REACTIONS (2)
  - HAEMODIALYSIS [None]
  - NEPHRITIS INTERSTITIAL [None]
